FAERS Safety Report 9949104 (Version 2)
Quarter: 2014Q1

REPORT INFORMATION
  Report Type: Report from Study
  Country: GB (occurrence: GB)
  Receive Date: 20140304
  Receipt Date: 20140320
  Transmission Date: 20141002
  Serious: Yes (Hospitalization)
  Sender: FDA-Public Use
  Company Number: GB-ACCORD-022109

PATIENT
  Age: 52 Year
  Sex: Female

DRUGS (12)
  1. DOCETAXEL [Suspect]
     Indication: BREAST CANCER
     Route: 042
     Dates: start: 20140117
  2. FLUCONAZOLE [Concomitant]
     Dates: start: 20140124, end: 20140125
  3. METOCLOPRAMIDE [Concomitant]
     Indication: NAUSEA
     Dates: start: 20140124
  4. MEROPENEM [Concomitant]
     Dates: start: 20140124, end: 20140127
  5. TRASTUZUMAB [Concomitant]
     Indication: BREAST CANCER
     Dosage: 8MG/KG ON DAY 1 OF CYCLE 1
     Route: 042
     Dates: start: 20140117
  6. PERTUZUMAB [Concomitant]
     Indication: BREAST CANCER
     Dosage: ON DAY 1 OF CYCLE 1
     Route: 042
     Dates: start: 20140116
  7. DIFFLAM [Concomitant]
     Dates: start: 20140124
  8. ONDANSETRON [Concomitant]
     Indication: NAUSEA
     Dates: start: 20140124
  9. ZOPICLONE [Concomitant]
     Indication: INSOMNIA
     Dates: start: 20140124, end: 20140127
  10. AMOXICILLIN TRIHYDRATE/CLAVULANATE POTASSIUM [Concomitant]
     Dates: start: 20140124, end: 20140130
  11. NO DRUG NAME [Concomitant]
     Dates: start: 20140124, end: 20140130
  12. POTASSIUM BICARBONATE/SODIUM BICARBONATE/SODIUM PHOSPHATE DIBASIC [Concomitant]
     Indication: BLOOD PHOSPHORUS DECREASED
     Dates: start: 20140124, end: 20140127

REACTIONS (1)
  - Pyrexia [Recovered/Resolved]
